FAERS Safety Report 23746255 (Version 1)
Quarter: 2024Q2

REPORT INFORMATION
  Report Type: Other
  Country: CA (occurrence: CA)
  Receive Date: 20240416
  Receipt Date: 20240416
  Transmission Date: 20240716
  Serious: Yes (Other)
  Sender: FDA-Public Use
  Company Number: CA-APOTEX-2024AP004530

PATIENT
  Age: 78 Year
  Sex: Male

DRUGS (2)
  1. ABIRATERONE [Suspect]
     Active Substance: ABIRATERONE
     Indication: Prostate cancer
     Dosage: 1000 MILLIGRAM (THERAPY DURATION 5.78 YEARS)
     Route: 048
  2. ABIRATERONE [Suspect]
     Active Substance: ABIRATERONE
     Dosage: 500 MILLIGRAM, (THERAPY DURATION 5.78 YEARS)
     Route: 048

REACTIONS (4)
  - Bladder pain [Not Recovered/Not Resolved]
  - Urinary incontinence [Not Recovered/Not Resolved]
  - Atrial fibrillation [Not Recovered/Not Resolved]
  - Hypokalaemia [Not Recovered/Not Resolved]
